FAERS Safety Report 6336131-9 (Version None)
Quarter: 2009Q3

REPORT INFORMATION
  Report Type: 
  Country: None (occurrence: None)
  Receive Date: 20090828
  Receipt Date: 20090818
  Transmission Date: 20100115
  Serious: Yes (Life-Threatening)
  Sender: FDA-Public Use
  Company Number: ADR14082009

PATIENT
  Age: 32 Year
  Sex: 0

DRUGS (4)
  1. CITALOPRAM HYDROBROMIDE [Suspect]
     Indication: DEPRESSION
     Dosage: 20MG ORAL
     Route: 048
     Dates: start: 20060601, end: 20071221
  2. DANTROLENE SODIUM [Concomitant]
  3. INTERFERON BETA [Concomitant]
  4. TEGRETOL [Concomitant]

REACTIONS (2)
  - APLASTIC ANAEMIA [None]
  - VAGINAL HAEMORRHAGE [None]
